FAERS Safety Report 9016247 (Version 2)
Quarter: 2013Q1

REPORT INFORMATION
  Report Type: Spontaneous
  Country: FR (occurrence: FR)
  Receive Date: 20130116
  Receipt Date: 20130123
  Transmission Date: 20140127
  Serious: Yes (Life-Threatening, Hospitalization)
  Sender: FDA-Public Use
  Company Number: FR-B.I. PHARMACEUTICALS,INC./RIDGEFIELD-2013-FF-00071FF

PATIENT
  Age: 69 Year
  Sex: Female
  Weight: 43 kg

DRUGS (5)
  1. SPIRIVA [Suspect]
     Indication: BRONCHIECTASIS
     Dosage: 18 MCG
     Route: 055
     Dates: start: 20090424
  2. SPIRIVA [Suspect]
     Indication: CHRONIC OBSTRUCTIVE PULMONARY DISEASE
  3. FOSAMAX [Concomitant]
     Indication: OSTEOPOROSIS
  4. NASONEX [Concomitant]
     Route: 045
  5. AERIUS [Concomitant]

REACTIONS (1)
  - Ventricular fibrillation [Recovered/Resolved]
